FAERS Safety Report 7440644-6 (Version None)
Quarter: 2011Q2

REPORT INFORMATION
  Report Type: 
  Country: None (occurrence: None)
  Receive Date: 20110427
  Receipt Date: 20110420
  Transmission Date: 20111010
  Serious: Yes (Hospitalization, Other)
  Sender: FDA-Public Use
  Company Number: US-PFIZER INC-2011086974

PATIENT
  Sex: Female

DRUGS (8)
  1. OMEPRAZOLE [Concomitant]
     Indication: DUODENITIS
  2. SOLU-MEDROL [Suspect]
  3. REBIF [Suspect]
     Indication: MULTIPLE SCLEROSIS
     Dosage: 44 UG, THREE TIMES PER WEEK
     Route: 058
     Dates: start: 20060310
  4. DOMPERIDONE [Concomitant]
     Indication: DUODENITIS
  5. INSULIN [Concomitant]
     Indication: BLOOD GLUCOSE INCREASED
  6. OMEPRAZOLE [Concomitant]
     Indication: GASTRITIS
     Dosage: UNK
  7. DOMPERIDONE [Concomitant]
     Indication: GASTRITIS
     Dosage: UNK
  8. ALL OTHER THERAPEUTIC PRODUCTS [Concomitant]
     Indication: HOT FLUSH
     Dosage: UNK

REACTIONS (3)
  - PANCREATITIS [None]
  - MULTIPLE SCLEROSIS RELAPSE [None]
  - BLOOD GLUCOSE INCREASED [None]
